FAERS Safety Report 11593359 (Version 1)
Quarter: 2015Q4

REPORT INFORMATION
  Report Type: Report from Study
  Country: PL (occurrence: PL)
  Receive Date: 20151005
  Receipt Date: 20151005
  Transmission Date: 20160304
  Serious: No
  Sender: FDA-Public Use
  Company Number: PL-UCBSA-2014001705

PATIENT
  Age: 50 Year
  Sex: Male
  Weight: 97 kg

DRUGS (12)
  1. CERTOLIZUMAB PEGOL RA [Suspect]
     Active Substance: CERTOLIZUMAB PEGOL
     Indication: RHEUMATOID ARTHRITIS
     Dosage: UNK
     Route: 058
     Dates: end: 20140603
  2. METHOTREXATE [Concomitant]
     Active Substance: METHOTREXATE
     Indication: RHEUMATOID ARTHRITIS
     Dosage: 25 MG, AS NEEDED (PRN)
     Route: 048
     Dates: start: 20130716
  3. NEBIVOLOL. [Concomitant]
     Active Substance: NEBIVOLOL
     Indication: HYPERTENSION
     Dosage: 15 MG, 2X/DAY (BID)
     Dates: start: 20130429
  4. IPP [Concomitant]
     Active Substance: PANTOPRAZOLE SODIUM
     Indication: PROPHYLAXIS AGAINST GASTROINTESTINAL ULCER
     Dosage: 20 MG, UNK
     Route: 048
     Dates: start: 20130429
  5. FOLIC ACID. [Concomitant]
     Active Substance: FOLIC ACID
     Indication: DRUG TOXICITY PROPHYLAXIS
     Dosage: 5 MG, AS NEEDED (PRN)
     Dates: start: 20130704
  6. POLPRIL [Concomitant]
     Active Substance: RAMIPRIL
     Indication: HYPERTENSION
     Dosage: 10 MG, 2X/DAY (BID)
     Route: 048
     Dates: start: 20130429
  7. VITRUM CALCIUM + VIT D3 [Concomitant]
     Indication: OSTEOPOROSIS PROPHYLAXIS
     Dosage: 1000 MG, ONCE DAILY (QD)
     Route: 048
     Dates: start: 20130429
  8. TERTENSIF [Concomitant]
     Indication: HYPERTENSION
     Dosage: 1.5 MG, ONCE DAILY (QD)
     Route: 048
     Dates: start: 20130429
  9. METYPRED [Concomitant]
     Active Substance: METHYLPREDNISOLONE
     Indication: RHEUMATOID ARTHRITIS
     Dosage: 4 MG, ONCE DAILY (QD)
     Route: 048
     Dates: start: 20121211
  10. CERTOLIZUMAB PEGOL RA [Suspect]
     Active Substance: CERTOLIZUMAB PEGOL
     Dosage: UNK, EV 4 WEEKS
     Route: 058
  11. DICLORATIO UNO [Concomitant]
     Indication: RHEUMATOID ARTHRITIS
     Dosage: 150 MG, ONCE DAILY (QD)
     Route: 048
     Dates: start: 20130429
  12. AMLOPIN [Concomitant]
     Active Substance: AMLODIPINE BESYLATE
     Indication: HYPERTENSION
     Dosage: 10 MG, ONCE DAILY (QD)
     Route: 048
     Dates: start: 20130429

REACTIONS (1)
  - Latent tuberculosis [Recovered/Resolved]

NARRATIVE: CASE EVENT DATE: 20140603
